FAERS Safety Report 23758866 (Version 1)
Quarter: 2024Q2

REPORT INFORMATION
  Report Type: Spontaneous
  Country: US (occurrence: US)
  Receive Date: 20240418
  Receipt Date: 20240418
  Transmission Date: 20240716
  Serious: No
  Sender: FDA-Public Use
  Company Number: US-SA-SAC20240415000998

PATIENT
  Sex: Female

DRUGS (21)
  1. DUPIXENT [Suspect]
     Active Substance: DUPILUMAB
     Indication: Neurodermatitis
     Dosage: 300 MG, QOW
     Route: 058
  2. ALBUTEROL SULFATE [Concomitant]
     Active Substance: ALBUTEROL SULFATE
  3. AZITHROMYCIN [Concomitant]
     Active Substance: AZITHROMYCIN
  4. CLOBETASOL [Concomitant]
     Active Substance: CLOBETASOL
  5. DULOXETINE [Concomitant]
     Active Substance: DULOXETINE
  6. ELIQUIS [Concomitant]
     Active Substance: APIXABAN
  7. FUROSEMIDE [Concomitant]
     Active Substance: FUROSEMIDE
  8. GABAPENTIN [Concomitant]
     Active Substance: GABAPENTIN
  9. HYDRALAZINE [Concomitant]
     Active Substance: HYDRALAZINE HYDROCHLORIDE
  10. IBUPROFEN [Concomitant]
     Active Substance: IBUPROFEN
  11. LOSARTAN POTASSIUM [Concomitant]
     Active Substance: LOSARTAN POTASSIUM
  12. MYRBETRIQ [Concomitant]
     Active Substance: MIRABEGRON
  13. ONDANSETRON [Concomitant]
     Active Substance: ONDANSETRON
  14. PROPRANOLOL [Concomitant]
     Active Substance: PROPRANOLOL HYDROCHLORIDE
  15. TACROLIMUS [Concomitant]
     Active Substance: TACROLIMUS
  16. TIZANIDINE [Concomitant]
     Active Substance: TIZANIDINE
  17. TRAZODONE [Concomitant]
     Active Substance: TRAZODONE HYDROCHLORIDE
  18. TROKENDI XR [Concomitant]
     Active Substance: TOPIRAMATE
  19. LOSARTAN POTASSIUM [Concomitant]
     Active Substance: LOSARTAN POTASSIUM
  20. FUROSEMIDE [Concomitant]
     Active Substance: FUROSEMIDE
  21. HYDROCHLOROTHIAZIDE [Concomitant]
     Active Substance: HYDROCHLOROTHIAZIDE

REACTIONS (5)
  - Rash [Unknown]
  - Skin discomfort [Unknown]
  - Pain of skin [Unknown]
  - Neurodermatitis [Unknown]
  - Sleep disorder due to a general medical condition [Unknown]
